FAERS Safety Report 8565014-9 (Version None)
Quarter: 2012Q3

REPORT INFORMATION
  Report Type: 
  Country: None (occurrence: None)
  Receive Date: 20120803
  Receipt Date: 20070516
  Transmission Date: 20120928
  Serious: Yes (Other)
  Sender: FDA-Public Use
  Company Number: CO-PFIZER INC-2012186216

PATIENT
  Age: 66 Year
  Sex: Male

DRUGS (2)
  1. QUINAPRIL AND HYDROCHLOROTHIAZIDE [Suspect]
     Indication: HYPERTENSION
     Dosage: 1 DF, 1X/DAY
  2. LIPITOR [Suspect]
     Indication: DYSLIPIDAEMIA
     Dosage: 1 DF, 1X/DAY

REACTIONS (3)
  - PYREXIA [None]
  - HYPERTENSIVE EMERGENCY [None]
  - COUGH [None]
